FAERS Safety Report 5109136-3 (Version None)
Quarter: 2006Q3

REPORT INFORMATION
  Report Type: 
  Country: None (occurrence: None)
  Receive Date: 20060920
  Receipt Date: 20060802
  Transmission Date: 20061208
  Serious: Yes (Other)
  Sender: FDA-Public Use
  Company Number: JP-ROCHE-458350

PATIENT
  Age: 66 Year
  Sex: Male

DRUGS (5)
  1. PEGASYS [Suspect]
     Indication: HEPATITIS C
     Route: 058
     Dates: start: 20051216, end: 20060724
  2. CLARITHROMYCIN [Suspect]
     Indication: ENTEROCOLITIS
     Route: 048
     Dates: start: 20060731
  3. NORVASC [Concomitant]
     Route: 048
     Dates: start: 19961001
  4. NEOLAMIN 3 B [Concomitant]
     Dosage: REPORTED AS NEOLAMIN 3BS. ROUTE REPORTED AS INTRAVENOUS (NOT OTHERWISE SPECIFIED).
     Route: 042
     Dates: start: 19961001
  5. NEO-MINOPHAGEN C [Concomitant]
     Dosage: ROUTE REPORTED AS INTRAVENOUS (NOT OTHERWISE SPECIFIED).
     Route: 042
     Dates: start: 20060304, end: 20060724

REACTIONS (7)
  - ACUTE ABDOMEN [None]
  - ALANINE AMINOTRANSFERASE INCREASED [None]
  - ASPARTATE AMINOTRANSFERASE INCREASED [None]
  - COLITIS ISCHAEMIC [None]
  - GAMMA-GLUTAMYLTRANSFERASE INCREASED [None]
  - HEPATIC FUNCTION ABNORMAL [None]
  - RHINORRHOEA [None]
